FAERS Safety Report 13066294 (Version 2)
Quarter: 2016Q4

REPORT INFORMATION
  Report Type: Report from Study
  Country: BR (occurrence: BR)
  Receive Date: 20161227
  Receipt Date: 20161230
  Transmission Date: 20170207
  Serious: Yes (Hospitalization, Other)
  Sender: FDA-Public Use
  Company Number: BR-JNJFOC-20161218675

PATIENT
  Age: 76 Year
  Sex: Male
  Weight: 91 kg

DRUGS (4)
  1. AAS [Concomitant]
     Active Substance: ASPIRIN
     Route: 065
  2. CARVEDILOL. [Concomitant]
     Active Substance: CARVEDILOL
     Route: 065
  3. STELARA [Suspect]
     Active Substance: USTEKINUMAB
     Indication: PSORIASIS
     Route: 058
     Dates: start: 20160513
  4. SUSTRATE [Concomitant]
     Active Substance: PROPATYL NITRATE
     Route: 065

REACTIONS (4)
  - Haematochezia [Recovering/Resolving]
  - Gastric ulcer [Recovering/Resolving]
  - Psoriasis [Recovering/Resolving]
  - Drug ineffective [Unknown]

NARRATIVE: CASE EVENT DATE: 20161208
